FAERS Safety Report 8282019-6 (Version None)
Quarter: 2012Q2

REPORT INFORMATION
  Report Type: 
  Country: None (occurrence: None)
  Receive Date: 20120413
  Receipt Date: 20120405
  Transmission Date: 20120825
  Serious: Yes (Other)
  Sender: FDA-Public Use
  Company Number: US-VIROPHARMA INCORPORATED-20111227CINRY2535

PATIENT
  Sex: Female

DRUGS (3)
  1. CINRYZE [Suspect]
     Dates: end: 20120301
  2. CINRYZE [Suspect]
     Dates: start: 20120301
  3. CINRYZE [Suspect]
     Indication: HEREDITARY ANGIOEDEMA
     Dates: start: 20110401

REACTIONS (3)
  - HYPOAESTHESIA [None]
  - SPLENIC MARGINAL ZONE LYMPHOMA [None]
  - SWELLING [None]
